FAERS Safety Report 9915256 (Version 1)
Quarter: 2014Q1

REPORT INFORMATION
  Report Type: Report from Study
  Country: US (occurrence: US)
  Receive Date: 20140221
  Receipt Date: 20140221
  Transmission Date: 20141002
  Serious: Yes (Other)
  Sender: FDA-Public Use
  Company Number: US-ROCHE-1215286

PATIENT
  Sex: Female
  Weight: 54.48 kg

DRUGS (2)
  1. AVASTIN [Suspect]
     Indication: MACULAR FIBROSIS
     Route: 050
     Dates: start: 201301, end: 201301
  2. AVASTIN [Suspect]
     Indication: OFF LABEL USE

REACTIONS (1)
  - Retinal oedema [Unknown]
